FAERS Safety Report 10184429 (Version 1)
Quarter: 2014Q2

REPORT INFORMATION
  Report Type: Spontaneous
  Country: US (occurrence: US)
  Receive Date: 20140521
  Receipt Date: 20140521
  Transmission Date: 20141212
  Serious: Yes (Hospitalization)
  Sender: FDA-Public Use
  Company Number: 2014SP001060

PATIENT
  Age: 59 Year
  Sex: Male
  Weight: 66.8 kg

DRUGS (19)
  1. DOXORUBICIN [Suspect]
     Indication: SARCOMA METASTATIC
     Dates: start: 20130130
  2. DOXORUBICIN [Suspect]
     Indication: SARCOMA METASTATIC
     Dates: start: 20130515
  3. ATENOLOL [Concomitant]
     Indication: HYPERTENSION
     Dates: start: 2003
  4. RANITIDINE [Concomitant]
     Dates: start: 2006
  5. LORAZEPAM [Concomitant]
     Dates: start: 20130130
  6. OXYCODONE [Concomitant]
     Dates: start: 20130130
  7. PROCHLORPERAZINE MALEATE [Concomitant]
     Dates: start: 20130130
  8. PALONOSETRON [Concomitant]
     Dates: start: 20130130
  9. DEXAMETHASONE [Concomitant]
     Dates: start: 20130130
  10. FOSAPREPITANT [Concomitant]
     Dates: start: 20130130
  11. SALBUTAMOL SULFATE [Concomitant]
     Dates: start: 20130506, end: 20131003
  12. IPRATROPIUM BROMIDE [Concomitant]
     Dates: start: 20130506, end: 20131003
  13. ALUMINIUM HYDROXIDE [Concomitant]
  14. DIPHENHYDRAMINE HYDROCHLORIDE [Concomitant]
  15. LIDOCAINE HYDROCHLORIDE [Concomitant]
  16. MAGNESIUM HYDROXIDE [Concomitant]
  17. LIDOCAINE [Concomitant]
     Dates: start: 20130130
  18. PRILOCAINE [Concomitant]
     Dates: start: 20130130
  19. PREDNISONE [Concomitant]

REACTIONS (16)
  - Rhinitis [Unknown]
  - Hypokalaemia [Unknown]
  - Herpes simplex [Unknown]
  - Pneumonia [Unknown]
  - Dyspnoea [Unknown]
  - Productive cough [Unknown]
  - Stomatitis [Unknown]
  - Oropharyngeal pain [Unknown]
  - Hypophagia [Unknown]
  - Febrile neutropenia [Recovered/Resolved]
  - Pyrexia [Unknown]
  - Dehydration [Unknown]
  - Pancytopenia [Recovered/Resolved]
  - Anaemia [Unknown]
  - Thrombocytopenia [Recovered/Resolved]
  - Haematuria [Recovered/Resolved]
